FAERS Safety Report 4330400-X (Version None)
Quarter: 2004Q2

REPORT INFORMATION
  Report Type: 
  Country: None (occurrence: None)
  Receive Date: 20040402
  Receipt Date: 20040114
  Transmission Date: 20050107
  Serious: Yes (Other)
  Sender: FDA-Public Use
  Company Number: 200410335US

PATIENT
  Sex: Female

DRUGS (3)
  1. LANTUS [Suspect]
     Dosage: DOSE UNIT: UNITS
  2. NPH INSULIN [Concomitant]
     Dosage: DOSE: UNK
  3. ALL OTHER THERAPEUTIC PRODUCTS [Concomitant]

REACTIONS (8)
  - BLOOD GLUCOSE DECREASED [None]
  - BLOOD GLUCOSE INCREASED [None]
  - COMPLICATIONS OF MATERNAL EXPOSURE TO THERAPEUTIC DRUGS [None]
  - FOETAL CARDIAC DISORDER [None]
  - IMPAIRED GASTRIC EMPTYING [None]
  - MATERNAL DRUGS AFFECTING FOETUS [None]
  - NEUROPATHY [None]
  - STILLBIRTH [None]
